FAERS Safety Report 8530671-X (Version None)
Quarter: 2012Q3

REPORT INFORMATION
  Report Type: 
  Country: None (occurrence: None)
  Receive Date: 20120723
  Receipt Date: 20120618
  Transmission Date: 20120928
  Serious: No
  Sender: FDA-Public Use
  Company Number: US-TEVA-341273USA

PATIENT
  Age: 84 Year
  Sex: Male

DRUGS (1)
  1. TRIAMCINOLONE [Suspect]
     Dosage: 55 MCG / 17 G; SPRAY

REACTIONS (1)
  - DRUG INEFFECTIVE [None]
